FAERS Safety Report 5909192-6 (Version None)
Quarter: 2008Q4

REPORT INFORMATION
  Report Type: 
  Country: None (occurrence: None)
  Receive Date: 20081006
  Receipt Date: 20080929
  Transmission Date: 20090506
  Serious: Yes (Other)
  Sender: FDA-Public Use
  Company Number: PHBS2008IN05868

PATIENT
  Age: 9 Year
  Sex: Female

DRUGS (4)
  1. CYCLOSPORINE [Suspect]
     Indication: APLASIA PURE RED CELL
     Dosage: 2.5 MG/KG, BID
  2. BLOOD TRANSFUSION, AUXILIARY PRODUCTS [Concomitant]
  3. PREDNISOLONE [Concomitant]
     Dosage: 10 MG/DAY
  4. METHYLPREDNISOLONE [Concomitant]

REACTIONS (2)
  - HYPERTENSION [None]
  - PROTEINURIA [None]
